FAERS Safety Report 9718900 (Version 1)
Quarter: 2013Q4

REPORT INFORMATION
  Report Type: Report from Study
  Country: TR (occurrence: TR)
  Receive Date: 20131127
  Receipt Date: 20131127
  Transmission Date: 20140711
  Serious: Yes (Other)
  Sender: FDA-Public Use
  Company Number: TR-US-EMD SERONO, INC.-7251554

PATIENT
  Sex: Female
  Weight: 53 kg

DRUGS (6)
  1. REBIF [Suspect]
     Indication: MULTIPLE SCLEROSIS
     Route: 058
     Dates: start: 2006, end: 201304
  2. REBIF [Suspect]
  3. YASMIN [Suspect]
     Indication: POLYCYSTIC OVARIES
     Route: 048
     Dates: end: 201304
  4. YASMIN [Suspect]
  5. SUPRAFEN [Suspect]
     Indication: ANALGESIC THERAPY
     Route: 048
     Dates: start: 2006, end: 201304
  6. SUPRAFEN [Suspect]

REACTIONS (5)
  - Cardiac disorder [Not Recovered/Not Resolved]
  - Chills [Not Recovered/Not Resolved]
  - Injection site erythema [Not Recovered/Not Resolved]
  - Injection site pain [Not Recovered/Not Resolved]
  - Wrong technique in drug usage process [Unknown]
